FAERS Safety Report 24539756 (Version 1)
Quarter: 2024Q4

REPORT INFORMATION
  Report Type: Spontaneous
  Country: JP (occurrence: JP)
  Receive Date: 20241023
  Receipt Date: 20241023
  Transmission Date: 20250114
  Serious: Yes (Death, Hospitalization, Other)
  Sender: PFIZER
  Company Number: JP-PFIZER INC-202400282115

PATIENT
  Age: 85 Year
  Sex: Male

DRUGS (3)
  1. GEMCITABINE HYDROCHLORIDE [Suspect]
     Active Substance: GEMCITABINE HYDROCHLORIDE
     Indication: Pancreatic carcinoma
     Dosage: 1000 MG/M2, DAYS 1,8 AND 15
  2. GEMCITABINE HYDROCHLORIDE [Suspect]
     Active Substance: GEMCITABINE HYDROCHLORIDE
     Dosage: REDUCED BY 80% FROM THE 14TH CYCLE, FURTHER REDUCED BY 80% IN THE 15TH CYCLE
  3. GEMCITABINE HYDROCHLORIDE [Suspect]
     Active Substance: GEMCITABINE HYDROCHLORIDE
     Dosage: FURTHER REDUCED BY 80% IN THE 15TH CYCLE

REACTIONS (2)
  - Thrombotic microangiopathy [Fatal]
  - Thrombotic thrombocytopenic purpura [Fatal]
